FAERS Safety Report 6524776-2 (Version None)
Quarter: 2009Q4

REPORT INFORMATION
  Report Type: 
  Country: None (occurrence: None)
  Receive Date: 20091224
  Receipt Date: 20091224
  Transmission Date: 20100525
  Serious: No
  Sender: FDA-Public Use
  Company Number: None

PATIENT
  Age: 85 Year
  Sex: Male
  Weight: 89.8122 kg

DRUGS (7)
  1. COLD REMEDY ORAL MIST [Suspect]
     Dosage: ONE DOSE - ONE DOSE
     Dates: start: 20091212, end: 20091212
  2. CENTRUM SILVER [Concomitant]
  3. VITAMIN C [Concomitant]
  4. ASPIRIN [Concomitant]
  5. PLAVIX [Concomitant]
  6. AVODART [Concomitant]
  7. TERAZOSIN HCL [Concomitant]

REACTIONS (2)
  - AGEUSIA [None]
  - ANAESTHESIA [None]
